FAERS Safety Report 5373842-6 (Version None)
Quarter: 2007Q2

REPORT INFORMATION
  Report Type: 
  Country: None (occurrence: None)
  Receive Date: 20070627
  Receipt Date: 20070104
  Transmission Date: 20071010
  Serious: Yes (Death)
  Sender: FDA-Public Use
  Company Number: 477160

PATIENT
  Age: 69 Year
  Sex: Female

DRUGS (1)
  1. XELODA [Suspect]
     Indication: COLORECTAL CANCER METASTATIC
     Dosage: 2000 MG 2 PER DAY ORAL
     Route: 048
     Dates: start: 20060701, end: 20060905

REACTIONS (2)
  - COLORECTAL CANCER METASTATIC [None]
  - MALIGNANT NEOPLASM PROGRESSION [None]
